FAERS Safety Report 24077409 (Version 1)
Quarter: 2024Q3

REPORT INFORMATION
  Report Type: Spontaneous
  Country: ES (occurrence: ES)
  Receive Date: 20240711
  Receipt Date: 20240711
  Transmission Date: 20241016
  Serious: No
  Sender: PIERRE FABRE MEDICAMENT
  Company Number: ES-PFM-2023-03277

PATIENT
  Age: 12 Hour
  Sex: Female
  Weight: 3 kg

DRUGS (3)
  1. PROPRANOLOL [Suspect]
     Active Substance: PROPRANOLOL HYDROCHLORIDE
     Indication: Pericardial effusion
     Dosage: 2 MG/KG/DAY
     Route: 065
  2. PROPRANOLOL [Suspect]
     Active Substance: PROPRANOLOL HYDROCHLORIDE
     Indication: Off label use
  3. PREDNISOLONE [Concomitant]
     Active Substance: PREDNISOLONE
     Indication: Pericardial effusion
     Dosage: 1.5 MG/KG/DAY
     Route: 048

REACTIONS (5)
  - Product use issue [Unknown]
  - Product use in unapproved indication [Unknown]
  - Product use issue [Unknown]
  - Drug ineffective [Unknown]
  - Off label use [Unknown]
